FAERS Safety Report 21815959 (Version 1)
Quarter: 2023Q1

REPORT INFORMATION
  Report Type: Spontaneous
  Country: IT (occurrence: IT)
  Receive Date: 20230104
  Receipt Date: 20230104
  Transmission Date: 20230417
  Serious: Yes (Other)
  Sender: FDA-Public Use
  Company Number: None

PATIENT
  Age: 69 Year
  Sex: Female
  Weight: 66 kg

DRUGS (5)
  1. PACLITAXEL [Suspect]
     Active Substance: PACLITAXEL
     Indication: Breast cancer
     Dosage: 100 MG PER 60 MINUTES, WEEKLY
     Route: 042
     Dates: start: 20220729, end: 20221103
  2. ONDANSETRON [Concomitant]
     Active Substance: ONDANSETRON
     Indication: Nausea
     Dosage: 8 MG PER 15 MINUTES
     Route: 042
     Dates: start: 20220729, end: 20221103
  3. TRIMETON [Concomitant]
     Active Substance: CHLORPHENIRAMINE MALEATE
     Indication: Hypersensitivity
     Dosage: 10 MG PER 15 MINUTES
     Route: 042
     Dates: start: 20220729, end: 20221103
  4. DEXAMETHASONE [Concomitant]
     Active Substance: DEXAMETHASONE
     Indication: Drug hypersensitivity
     Dosage: 8 MG PER 15 MINUTES
     Route: 042
     Dates: start: 20220729, end: 20221103
  5. FAMOTIDINA [Concomitant]
     Indication: Ulcer
     Dosage: 20 MG PER 20 MINUTES
     Route: 042
     Dates: start: 20220729, end: 20221103

REACTIONS (9)
  - Leukopenia [Recovering/Resolving]
  - Anaemia [Recovering/Resolving]
  - Dry mouth [Recovering/Resolving]
  - Ageusia [Not Recovered/Not Resolved]
  - Parosmia [Not Recovered/Not Resolved]
  - Dry skin [Recovering/Resolving]
  - Asthenia [Recovering/Resolving]
  - Nausea [Recovering/Resolving]
  - Alopecia [Recovering/Resolving]

NARRATIVE: CASE EVENT DATE: 20220729
